FAERS Safety Report 8806734 (Version 1)
Quarter: 2012Q4

REPORT INFORMATION
  Report Type: 
  Country: IT (occurrence: IT)
  Receive Date: 20120925
  Receipt Date: 20120925
  Transmission Date: 20130627
  Serious: Yes (Hospitalization)
  Sender: FDA-Public Use
  Company Number: PHHY2012IT082210

PATIENT
  Age: 18 Year
  Sex: Male

DRUGS (3)
  1. AMOXICILLIN [Suspect]
     Indication: GINGIVITIS
     Dosage: 2 DF, UNK
     Route: 048
     Dates: start: 20120913, end: 20120915
  2. AULIN [Suspect]
     Indication: GINGIVAL PAIN
     Dosage: 1 DF, UNK
     Route: 048
     Dates: start: 20120916, end: 20120916
  3. ASPIRINA C [Suspect]
     Indication: GINGIVAL PAIN
     Dosage: 1 DF, UNK
     Route: 048
     Dates: start: 20120916, end: 20120916

REACTIONS (3)
  - Dyspepsia [Recovering/Resolving]
  - Abdominal pain upper [Recovering/Resolving]
  - Nausea [Recovering/Resolving]
